FAERS Safety Report 4391577-3 (Version None)
Quarter: 2004Q3

REPORT INFORMATION
  Report Type: 
  Country: None (occurrence: None)
  Receive Date: 20040702
  Receipt Date: 20040223
  Transmission Date: 20050211
  Serious: No
  Sender: FDA-Public Use
  Company Number: 2004UW03256

PATIENT
  Age: 35 Year
  Sex: Male

DRUGS (6)
  1. CRESTOR [Suspect]
     Indication: HYPERCHOLESTEROLAEMIA
     Dosage: 40 MG QD PO
     Route: 048
  2. ACTOS [Concomitant]
  3. NO MATCH [Concomitant]
  4. TRICOR [Concomitant]
  5. NIACIN [Concomitant]
  6. FISH OIL [Concomitant]

REACTIONS (1)
  - MYOPATHY [None]
